FAERS Safety Report 19209143 (Version 1)
Quarter: 2021Q2

REPORT INFORMATION
  Report Type: Report from Study
  Country: None (occurrence: US)
  Receive Date: 20210504
  Receipt Date: 20210504
  Transmission Date: 20210717
  Serious: Yes (Hospitalization, Other)
  Sender: FDA-Public Use
  Company Number: US-ABBVIE-21K-163-3729383-00

PATIENT
  Sex: Female
  Weight: 90.8 kg

DRUGS (5)
  1. TRAZODONE [Concomitant]
     Active Substance: TRAZODONE HYDROCHLORIDE
     Indication: SLEEP DISORDER THERAPY
  2. CELECOXIB. [Concomitant]
     Active Substance: CELECOXIB
     Indication: PAIN
  3. LEVOTHYROXINE. [Concomitant]
     Active Substance: LEVOTHYROXINE
     Indication: THYROID DISORDER
  4. ATORVASTATIN [Concomitant]
     Active Substance: ATORVASTATIN
     Indication: BLOOD CHOLESTEROL
  5. HUMIRA [Suspect]
     Active Substance: ADALIMUMAB
     Indication: PRODUCT USED FOR UNKNOWN INDICATION
     Route: 058
     Dates: start: 202002, end: 202012

REACTIONS (13)
  - Gait inability [Unknown]
  - Spinal disorder [Unknown]
  - Impaired quality of life [Unknown]
  - Musculoskeletal disorder [Unknown]
  - Quadriplegia [Unknown]
  - Sepsis [Unknown]
  - Mobility decreased [Unknown]
  - Functional gastrointestinal disorder [Unknown]
  - Abscess [Unknown]
  - Hypertension [Unknown]
  - Bladder dysfunction [Unknown]
  - Neck pain [Unknown]
  - Spinal cord infection [Unknown]
